FAERS Safety Report 4742968-X (Version None)
Quarter: 2005Q3

REPORT INFORMATION
  Report Type: 
  Country: None (occurrence: None)
  Receive Date: 20050811
  Receipt Date: 20050802
  Transmission Date: 20060218
  Serious: Yes (Hospitalization)
  Sender: FDA-Public Use
  Company Number: PHHO2005JP12220

PATIENT
  Age: 64 Year
  Sex: Male
  Weight: 65 kg

DRUGS (4)
  1. DIOVAN [Suspect]
     Indication: HYPERTENSION
     Dosage: 40 MG, BID
     Route: 048
     Dates: start: 20030305
  2. EPADEL [Concomitant]
     Indication: HYPERLIPIDAEMIA
  3. COMELIAN [Concomitant]
     Indication: GLOMERULONEPHRITIS CHRONIC
  4. LIPOVAS [Concomitant]
     Indication: HYPERLIPIDAEMIA

REACTIONS (4)
  - ANGINA UNSTABLE [None]
  - CHEST PAIN [None]
  - CORONARY ANGIOPLASTY [None]
  - CORONARY ARTERY STENOSIS [None]
